FAERS Safety Report 5919471-4 (Version None)
Quarter: 2008Q4

REPORT INFORMATION
  Report Type: 
  Country: None (occurrence: None)
  Receive Date: 20081014
  Receipt Date: 20081014
  Transmission Date: 20090506
  Serious: Yes (Hospitalization)
  Sender: FDA-Public Use
  Company Number: None

PATIENT
  Age: 87 Year
  Sex: Male
  Weight: 60 kg

DRUGS (1)
  1. PERCOCET [Suspect]
     Indication: RIB FRACTURE
     Dosage: 5/325 MG Q4H PRN PO
     Route: 048
     Dates: start: 20080908, end: 20080915

REACTIONS (1)
  - HALLUCINATION [None]
